FAERS Safety Report 8890596 (Version 2)
Quarter: 2012Q4

REPORT INFORMATION
  Report Type: 
  Country: US (occurrence: US)
  Receive Date: 20121106
  Receipt Date: 20121130
  Transmission Date: 20130627
  Serious: Yes (Hospitalization)
  Sender: FDA-Public Use
  Company Number: US-ALET-2012-18777

PATIENT
  Age: 20 Year
  Sex: Male

DRUGS (3)
  1. LEVETIRACETAM (UNKNOWN) [Suspect]
     Indication: INTENTIONAL OVERDOSE
     Dosage: UNK, unknown
     Route: 065
  2. DOXEPIN [Suspect]
     Indication: INTENTIONAL OVERDOSE
     Dosage: UNK, }3g
     Route: 065
  3. CITALOPRAM HYDROBROMIDE [Suspect]
     Indication: INTENTIONAL OVERDOSE
     Dosage: 1.2 g, UNK
     Route: 065

REACTIONS (5)
  - Grand mal convulsion [Recovered/Resolved]
  - Overdose [Recovered/Resolved]
  - Unresponsive to stimuli [Recovered/Resolved]
  - Cardiac arrest [Recovered/Resolved]
  - Toxicity to various agents [Recovered/Resolved]
